FAERS Safety Report 25574975 (Version 6)
Quarter: 2025Q4

REPORT INFORMATION
  Report Type: Spontaneous
  Country: JP (occurrence: JP)
  Receive Date: 20250718
  Receipt Date: 20251110
  Transmission Date: 20260117
  Serious: Yes (Life-Threatening, Hospitalization, Other)
  Sender: ABBVIE
  Company Number: JP-ABBVIE-6373829

PATIENT
  Age: 78 Year
  Sex: Female
  Weight: 54 kg

DRUGS (7)
  1. RINVOQ [Suspect]
     Active Substance: UPADACITINIB
     Indication: Colitis ulcerative
     Dosage: FORM STRENGTH: 15 MILLIGRAM
     Route: 048
     Dates: start: 20230322
  2. RINVOQ [Suspect]
     Active Substance: UPADACITINIB
     Indication: Colitis ulcerative
     Dosage: 45 MILLIGRAM
     Route: 048
     Dates: start: 20230125, end: 20230321
  3. SULFAMETHOXAZOLE AND TRIMETHOPRIM [Concomitant]
     Active Substance: SULFAMETHOXAZOLE\TRIMETHOPRIM
     Indication: Infection prophylaxis
     Dosage: TIME INTERVAL: 0.33333333 WEEKS: FREQUENCY TEXT: ONCE PER DAY - 3 TIMES PER WEEK.
     Route: 048
     Dates: start: 20220113, end: 20230510
  4. ALENDRONATE SODIUM [Concomitant]
     Active Substance: ALENDRONATE SODIUM
     Indication: Osteoporosis prophylaxis
     Route: 048
     Dates: start: 20220113, end: 20230816
  5. ESOMEPRAZOLE MAGNESIUM [Concomitant]
     Active Substance: ESOMEPRAZOLE MAGNESIUM
     Indication: Steroid therapy
     Dosage: 20 MILLIGRAM
     Route: 048
     Dates: start: 20220113
  6. PREDNISOLONE [Concomitant]
     Active Substance: PREDNISOLONE
     Indication: Steroid therapy
     Dosage: 30 MG/TIME, ONCE/DAY (TAPERING)
     Route: 048
     Dates: start: 20221130, end: 20230308
  7. MESALAMINE [Concomitant]
     Active Substance: MESALAMINE
     Indication: Colitis ulcerative
     Dosage: TIME INTERVAL: 0.33333333 DAYS: 3000 MILLIGRAM
     Route: 048
     Dates: start: 20210101

REACTIONS (2)
  - Gastric cancer [Recovering/Resolving]
  - Back pain [Unknown]

NARRATIVE: CASE EVENT DATE: 20250424
